FAERS Safety Report 8542419-3 (Version None)
Quarter: 2012Q3

REPORT INFORMATION
  Report Type: 
  Country: None (occurrence: None)
  Receive Date: 20120726
  Receipt Date: 20120723
  Transmission Date: 20120928
  Serious: Yes (Death, Other)
  Sender: FDA-Public Use
  Company Number: US-PFIZER INC-2012178264

PATIENT
  Sex: Male
  Weight: 45.805 kg

DRUGS (3)
  1. CADUET [Suspect]
     Indication: BLOOD CHOLESTEROL INCREASED
     Dosage: UNK
  2. ACCUPRIL [Suspect]
     Indication: HYPERTENSION
     Dosage: 40 MG, UNK
  3. ASPIRIN [Concomitant]
     Dosage: UNK

REACTIONS (6)
  - BLADDER CANCER [None]
  - ANEURYSM [None]
  - WEIGHT DECREASED [None]
  - ARTERIAL DISORDER [None]
  - RENAL CANCER [None]
  - ELECTROLYTE IMBALANCE [None]
